FAERS Safety Report 23945668 (Version 1)
Quarter: 2024Q2

REPORT INFORMATION
  Report Type: Spontaneous
  Country: CN (occurrence: CN)
  Receive Date: 20240606
  Receipt Date: 20240606
  Transmission Date: 20240716
  Serious: Yes (Hospitalization, Other)
  Sender: FDA-Public Use
  Company Number: CN-SHANGHAI JUNSHI BIOSCIENCES CO., LTD.-CN2024010171

PATIENT

DRUGS (4)
  1. TORIPALIMAB [Suspect]
     Active Substance: TORIPALIMAB
     Indication: Cholangiocarcinoma
     Dosage: 240 MG, EVERY 21 DAYS
     Route: 041
     Dates: start: 20240326, end: 20240326
  2. GEMZAR [Suspect]
     Active Substance: GEMCITABINE HYDROCHLORIDE
     Indication: Cholangiocarcinoma
     Dosage: 1400 MG, EVERY 21 DAYS
     Route: 041
     Dates: start: 20240326, end: 20240326
  3. OXALIPLATIN [Suspect]
     Active Substance: OXALIPLATIN
     Indication: Cholangiocarcinoma
     Dosage: 140 MG, EVERY 21 DAYS
     Route: 041
     Dates: start: 20240326, end: 20240326
  4. LENVATINIB MESYLATE [Suspect]
     Active Substance: LENVATINIB MESYLATE
     Indication: Cholangiocarcinoma
     Dosage: 4 MG, QD
     Route: 048
     Dates: start: 20240326, end: 20240331

REACTIONS (4)
  - Gastrointestinal disorder [Recovering/Resolving]
  - White blood cell count decreased [Recovered/Resolved]
  - Neutrophil count decreased [Recovered/Resolved]
  - Off label use [Unknown]

NARRATIVE: CASE EVENT DATE: 20240326
